FAERS Safety Report 13764771 (Version 1)
Quarter: 2017Q3

REPORT INFORMATION
  Report Type: Report from Study
  Country: BR (occurrence: BR)
  Receive Date: 20170718
  Receipt Date: 20170718
  Transmission Date: 20171127
  Serious: Yes (Hospitalization, Other)
  Sender: FDA-Public Use
  Company Number: BR-EMD SERONO-8114087

PATIENT
  Sex: Male

DRUGS (2)
  1. REBIF [Suspect]
     Active Substance: INTERFERON BETA-1A
     Indication: MULTIPLE SCLEROSIS
     Dosage: 44 MICROGRAM (0.5 ML)
     Route: 058
     Dates: start: 20071031, end: 201705
  2. REBIF [Suspect]
     Active Substance: INTERFERON BETA-1A

REACTIONS (6)
  - Blood pressure abnormal [Unknown]
  - Cerebrovascular accident [Unknown]
  - Gait disturbance [Recovered/Resolved with Sequelae]
  - Seizure [Unknown]
  - Urinary tract infection [Unknown]
  - Speech disorder [Recovered/Resolved with Sequelae]

NARRATIVE: CASE EVENT DATE: 2016
